FAERS Safety Report 9167661 (Version 1)
Quarter: 2013Q1

REPORT INFORMATION
  Report Type: Spontaneous
  Country: JP (occurrence: JP)
  Receive Date: 20130318
  Receipt Date: 20130318
  Transmission Date: 20140127
  Serious: Yes (Other)
  Sender: FDA-Public Use
  Company Number: PHHY2012JP105900

PATIENT
  Age: 76 Year
  Sex: Female

DRUGS (6)
  1. EXELON PATCH [Suspect]
     Indication: DEMENTIA
     Dosage: UNK UKN, UNK
     Route: 062
  2. EXELON PATCH [Suspect]
     Dosage: 9 MG, DAILY
     Route: 062
  3. EXELON PATCH [Suspect]
     Dosage: 18 MG, DAILY
     Route: 062
  4. EXELON PATCH [Suspect]
     Dosage: 13.5 MG, DAILY
     Route: 062
  5. EXELON PATCH [Suspect]
     Dosage: 9 MG, DAILY
     Route: 062
  6. EXELON PATCH [Suspect]
     Dosage: 4.5 MG, DAILY
     Route: 062

REACTIONS (3)
  - Gastrointestinal disorder [Recovered/Resolved]
  - Decreased appetite [Recovered/Resolved]
  - Diarrhoea [Unknown]
